FAERS Safety Report 7953682-1 (Version None)
Quarter: 2011Q4

REPORT INFORMATION
  Report Type: 
  Country: None (occurrence: None)
  Receive Date: 20111202
  Receipt Date: 20111121
  Transmission Date: 20120403
  Serious: Yes (Hospitalization, Disabling)
  Sender: FDA-Public Use
  Company Number: IN-JNJFOC-20111109875

PATIENT
  Age: 42 Year
  Sex: Male

DRUGS (11)
  1. REMICADE [Suspect]
     Dosage: 8TH DOSE
     Route: 042
     Dates: start: 20111104
  2. METHOTREXATE SODIUM [Concomitant]
     Route: 058
  3. PREDNISOLONE [Concomitant]
     Dosage: 1 TABLET IN THE MORNING AND 1/2 TABLET IN THE NIGHT
     Route: 065
  4. CALTEN D [Concomitant]
     Route: 065
  5. REMICADE [Suspect]
     Indication: PRODUCT USED FOR UNKNOWN INDICATION
     Dosage: RECEIVED 5 DOSES
     Route: 042
  6. REMICADE [Suspect]
     Dosage: 6TH DOSE SINCE 2009
     Route: 042
     Dates: start: 20110919
  7. SAAZ DS [Concomitant]
     Route: 065
  8. NAPROSYN [Concomitant]
     Route: 065
  9. PANTOCID DSR [Concomitant]
     Route: 065
  10. ALL OTHER THERAPEUTIC PRODUCTS [Concomitant]
     Route: 065
  11. REMICADE [Suspect]
     Dosage: 7TH DOSE
     Route: 042
     Dates: start: 20111005

REACTIONS (7)
  - ASTHENIA [None]
  - ARTHRALGIA [None]
  - VISUAL IMPAIRMENT [None]
  - PAIN [None]
  - PYREXIA [None]
  - ABASIA [None]
  - BONE PAIN [None]
